FAERS Safety Report 23634423 (Version 1)
Quarter: 2024Q1

REPORT INFORMATION
  Report Type: Spontaneous
  Country: US (occurrence: US)
  Receive Date: 20240314
  Receipt Date: 20240314
  Transmission Date: 20240410
  Serious: Yes (Other)
  Sender: FDA-Public Use
  Company Number: US-TEVA-VS-3168490

PATIENT
  Age: 32 Year
  Sex: Female

DRUGS (7)
  1. PENICILLIN [Suspect]
     Active Substance: PENICILLIN
     Indication: Product used for unknown indication
     Route: 065
  2. DIPHENHYDRAMINE [Concomitant]
     Active Substance: DIPHENHYDRAMINE
  3. EPINEPHRINE [Concomitant]
     Active Substance: EPINEPHRINE
  4. NEURONTIN [Concomitant]
     Active Substance: GABAPENTIN
  5. COZAAR [Concomitant]
     Active Substance: LOSARTAN POTASSIUM
  6. SOLU-MEDROL [Concomitant]
     Active Substance: METHYLPREDNISOLONE SODIUM SUCCINATE
  7. ZOLOFT [Concomitant]
     Active Substance: SERTRALINE HYDROCHLORIDE

REACTIONS (2)
  - Anaphylactic reaction [Unknown]
  - Hypersensitivity [Unknown]
